FAERS Safety Report 7775600-1 (Version None)
Quarter: 2011Q3

REPORT INFORMATION
  Report Type: 
  Country: None (occurrence: None)
  Receive Date: 20110923
  Receipt Date: 20110919
  Transmission Date: 20111222
  Serious: Yes (Death, Other)
  Sender: FDA-Public Use
  Company Number: BR-ASTRAZENECA-2011SE56329

PATIENT
  Age: 66 Year
  Sex: Male
  Weight: 60 kg

DRUGS (4)
  1. SYMBICORT [Suspect]
     Indication: PNEUMONIA
     Dosage: 320/90 MCG BID
     Route: 055
     Dates: start: 20110730
  2. HYDROCORTISONE [Suspect]
     Indication: PNEUMONIA
     Route: 042
     Dates: start: 20110722
  3. METRONIDAZOLE [Concomitant]
     Indication: PNEUMONIA
     Route: 042
     Dates: start: 20110722
  4. AZITHROMYCIN [Concomitant]
     Indication: PNEUMONIA
     Route: 042
     Dates: start: 20110722

REACTIONS (4)
  - RESPIRATORY FAILURE [None]
  - HYPERGLYCAEMIA [None]
  - HYPERTENSIVE CRISIS [None]
  - OFF LABEL USE [None]
